FAERS Safety Report 9201403 (Version 4)
Quarter: 2013Q2

REPORT INFORMATION
  Report Type: Report from Study
  Country: PL (occurrence: PL)
  Receive Date: 20130401
  Receipt Date: 20130610
  Transmission Date: 20140414
  Serious: Yes (Death, Other)
  Sender: FDA-Public Use
  Company Number: PL-BRISTOL-MYERS SQUIBB COMPANY-18724377

PATIENT
  Age: 45 Year
  Sex: Female

DRUGS (1)
  1. IPILIMUMAB [Suspect]
     Indication: MALIGNANT MELANOMA
     Dosage: 1DF: 252MG VS 840MG
     Route: 042
     Dates: start: 20120718, end: 20120828

REACTIONS (2)
  - Malignant neoplasm progression [Fatal]
  - Leukocytosis [Not Recovered/Not Resolved]
